FAERS Safety Report 20093892 (Version 3)
Quarter: 2022Q1

REPORT INFORMATION
  Report Type: Report from Study
  Country: US (occurrence: US)
  Receive Date: 20211121
  Receipt Date: 20220216
  Transmission Date: 20220423
  Serious: Yes (Hospitalization)
  Sender: FDA-Public Use
  Company Number: US-REGENERON PHARMACEUTICALS, INC.-2021-99503

PATIENT

DRUGS (18)
  1. CEMIPLIMAB [Suspect]
     Active Substance: CEMIPLIMAB
     Indication: Malignant melanoma
     Dosage: 350 MG, Q3W
     Route: 042
     Dates: start: 20200128, end: 20201229
  2. CEMIPLIMAB [Suspect]
     Active Substance: CEMIPLIMAB
     Dosage: 350 MG, Q3W (RETREATMENT)
     Route: 042
     Dates: start: 20210119, end: 20210907
  3. FIANLIMAB [Suspect]
     Active Substance: FIANLIMAB
     Indication: Malignant melanoma
     Dosage: 1600 MG, Q3W
     Route: 042
     Dates: start: 20200128, end: 20201229
  4. FIANLIMAB [Suspect]
     Active Substance: FIANLIMAB
     Dosage: 1600 MG, Q3W (RETREATMENT)
     Route: 042
     Dates: start: 20210119, end: 20210907
  5. PROZAC [Concomitant]
     Active Substance: FLUOXETINE HYDROCHLORIDE
     Indication: Anxiety
     Dosage: 80 MG, QD
     Route: 060
     Dates: start: 201902
  6. LORAZEPAM [Concomitant]
     Active Substance: LORAZEPAM
     Indication: Non-cardiac chest pain
     Dosage: 1 MG, AS NECESSARY
     Route: 048
     Dates: start: 20200129
  7. IBUPROFEN [Concomitant]
     Active Substance: IBUPROFEN
     Indication: Abdominal pain
     Dosage: 600 MG, AS NECESSARY
     Route: 048
     Dates: start: 20200129
  8. IBUPROFEN [Concomitant]
     Active Substance: IBUPROFEN
     Indication: Arthralgia
     Dosage: 600 MG, TID
     Route: 048
     Dates: start: 20201207
  9. IBUPROFEN [Concomitant]
     Active Substance: IBUPROFEN
     Indication: Headache
     Dosage: 200 MG, AS NECESSARY
     Route: 048
     Dates: start: 20210915
  10. MORPHINE [Concomitant]
     Active Substance: MORPHINE
     Indication: Abdominal pain upper
     Dosage: 15 MG, AS NECESSARY
     Route: 048
     Dates: start: 20200214
  11. BENADRYL                           /00000402/ [Concomitant]
     Indication: Periorbital oedema
     Dosage: 25 MG, AS NECESSARY
     Route: 048
     Dates: start: 20201008
  12. IMODIUM [Concomitant]
     Active Substance: LOPERAMIDE HYDROCHLORIDE
     Indication: Diarrhoea
     Dosage: 1 DF, AS NECESSARY
     Route: 048
     Dates: start: 20201127
  13. PREDNISONE [Concomitant]
     Active Substance: PREDNISONE
     Indication: Arthralgia
     Dosage: 5 MG, QD
     Route: 048
     Dates: start: 20210210
  14. PREDNISONE [Concomitant]
     Active Substance: PREDNISONE
     Indication: Encephalitis
     Dosage: 30 MG, QD
     Route: 048
     Dates: start: 20210929
  15. LEVOTHYROXINE [Concomitant]
     Active Substance: LEVOTHYROXINE
     Indication: Hypothyroidism
     Dosage: 150 MICROGRAM, QD
     Route: 048
     Dates: start: 20210315
  16. TYLENOL                            /00020001/ [Concomitant]
     Indication: Headache
     Dosage: 500 MG, AS NECESSARY
     Route: 048
     Dates: start: 20210915
  17. FLONASE                            /00908302/ [Concomitant]
     Indication: Nasal congestion
     Dosage: 2 SPRAY OTHER QD FOR 7 DAYS
     Route: 045
     Dates: start: 20210921
  18. AZELASTINE [Concomitant]
     Active Substance: AZELASTINE
     Indication: Nasal congestion
     Dosage: 13.7 MICROGRAM, QD FOR 7 DAYS
     Route: 045
     Dates: start: 20210921

REACTIONS (1)
  - Encephalitis autoimmune [Recovered/Resolved]

NARRATIVE: CASE EVENT DATE: 20211104
